FAERS Safety Report 6252801-5 (Version None)
Quarter: 2009Q3

REPORT INFORMATION
  Report Type: 
  Country: None (occurrence: None)
  Receive Date: 20090701
  Receipt Date: 20090622
  Transmission Date: 20100115
  Serious: Yes (Other)
  Sender: FDA-Public Use
  Company Number: JP-TYCO HEALTHCARE/MALLINCKRODT-T200901271

PATIENT
  Sex: Female

DRUGS (5)
  1. OPTIRAY 350 [Suspect]
     Indication: THERAPEUTIC EMBOLISATION
     Dosage: UNK
     Route: 013
     Dates: start: 20090303, end: 20090303
  2. ETHYL ESTER OD IODINATED POPPY SEED OIL FATTY ACID [Suspect]
     Indication: THERAPEUTIC EMBOLISATION
     Dosage: UNK
     Route: 013
     Dates: start: 20090303, end: 20090303
  3. EPIRUBICIN HYDROCHLORIDE [Suspect]
     Indication: THERAPEUTIC EMBOLISATION
     Dosage: UNK
     Route: 013
     Dates: start: 20090303, end: 20090303
  4. EPIRUBICIN HYDROCHLORIDE [Suspect]
     Indication: HEPATIC NEOPLASM MALIGNANT
  5. GELATIN [Suspect]
     Indication: THERAPEUTIC EMBOLISATION
     Dosage: UNK
     Route: 013
     Dates: start: 20090303, end: 20090303

REACTIONS (1)
  - VISUAL IMPAIRMENT [None]
